FAERS Safety Report 5871951-6 (Version None)
Quarter: 2008Q3

REPORT INFORMATION
  Report Type: 
  Country: None (occurrence: None)
  Receive Date: 20080905
  Receipt Date: 20080904
  Transmission Date: 20090109
  Serious: Yes (Death)
  Sender: FDA-Public Use
  Company Number: ES-BRISTOL-MYERS SQUIBB COMPANY-14217004

PATIENT
  Age: 41 Year
  Sex: Female

DRUGS (6)
  1. ZERIT [Suspect]
     Indication: HIV INFECTION
     Dosage: 56 CAPSULES
     Route: 048
     Dates: start: 20071227, end: 20080208
  2. AUGMENTIN '125' [Suspect]
     Indication: CELLULITIS
     Dosage: 1500 MG-1 DAY AUGMENTIN 500/125 MG,TABLET ,24 TABLET 1 DOSAGE FORM = 3FD 39D
     Route: 048
     Dates: start: 20071227, end: 20080106
  3. ALDACTONE [Concomitant]
     Dosage: 100MG COATED TABS
     Route: 048
  4. EPIVIR [Concomitant]
     Indication: HIV INFECTION
     Dosage: 50 COATED TABLETS
     Route: 048
  5. KALETRA [Concomitant]
     Indication: HIV INFECTION
     Dosage: 30 BLISTER 6 CAPSULES
     Route: 048
  6. AMOXICILLIN [Concomitant]
     Indication: CELLULITIS
     Route: 048
     Dates: end: 20080208

REACTIONS (1)
  - HEPATIC FAILURE [None]
